FAERS Safety Report 8771364 (Version 1)
Quarter: 2012Q4

REPORT INFORMATION
  Report Type: 
  Country: US (occurrence: US)
  Receive Date: 20120905
  Receipt Date: 20120905
  Transmission Date: 20130627
  Serious: Yes (Other)
  Sender: FDA-Public Use
  Company Number: US-009507513-1203USA00196

PATIENT

DRUGS (2)
  1. ISENTRESS [Suspect]
     Route: 048
  2. VIREAD [Suspect]

REACTIONS (3)
  - Cerebrovascular accident [Unknown]
  - Hypersensitivity [Unknown]
  - Rash [Not Recovered/Not Resolved]
